FAERS Safety Report 5755544-7 (Version None)
Quarter: 2008Q2

REPORT INFORMATION
  Report Type: 
  Country: None (occurrence: None)
  Receive Date: 20080602
  Receipt Date: 20080522
  Transmission Date: 20081010
  Serious: Yes (Hospitalization)
  Sender: FDA-Public Use
  Company Number: US-JNJFOC-20080305130

PATIENT
  Sex: Female
  Weight: 74.39 kg

DRUGS (9)
  1. RISPERDAL [Suspect]
     Indication: SCHIZOAFFECTIVE DISORDER
     Route: 048
  2. LEVAQUIN [Suspect]
     Indication: STAPHYLOCOCCAL INFECTION
  3. LEVAQUIN [Suspect]
     Indication: TOOTH INFECTION
  4. CIPROFLOXACIN HCL [Suspect]
     Indication: STAPHYLOCOCCAL INFECTION
  5. CIPROFLOXACIN HCL [Suspect]
     Indication: TOOTH INFECTION
  6. ZOLOFT [Suspect]
     Indication: DEPRESSION
     Route: 048
  7. ZOLOFT [Suspect]
     Indication: OBSESSIVE-COMPULSIVE DISORDER
     Route: 048
  8. CLONOPIN [Concomitant]
     Indication: ANXIETY
  9. RESTORIL [Concomitant]
     Indication: SLEEP DISORDER

REACTIONS (6)
  - AMENORRHOEA [None]
  - BLOOD SODIUM DECREASED [None]
  - GALACTORRHOEA [None]
  - POLYDIPSIA [None]
  - PSYCHOTIC DISORDER [None]
  - TOOTH INFECTION [None]
